FAERS Safety Report 16820913 (Version 1)
Quarter: 2019Q3

REPORT INFORMATION
  Report Type: Report from Study
  Country: DE (occurrence: DE)
  Receive Date: 20190918
  Receipt Date: 20190918
  Transmission Date: 20191005
  Serious: Yes (Other)
  Sender: FDA-Public Use
  Company Number: DE-TEVA-2019-DE-1103907

PATIENT
  Age: 67 Year
  Sex: Female
  Weight: 80 kg

DRUGS (38)
  1. CISATRACURIUM. [Suspect]
     Active Substance: CISATRACURIUM
     Indication: STUPOR
     Route: 042
     Dates: start: 20010910, end: 20010910
  2. NEOSTIGMINE. [Suspect]
     Active Substance: NEOSTIGMINE METHYLSULFATE
     Indication: PRODUCT USED FOR UNKNOWN INDICATION
     Dosage: 2DF/DAY
     Route: 042
     Dates: start: 20010911
  3. ISICOM [Suspect]
     Active Substance: CARBIDOPA\LEVODOPA
     Indication: PARKINSON^S DISEASE
     Route: 048
     Dates: end: 20010903
  4. ISICOM [Suspect]
     Active Substance: CARBIDOPA\LEVODOPA
     Dosage: 50 MILLIGRAM, TID
     Route: 048
     Dates: start: 20010904, end: 20010909
  5. JONOSTERIL [Concomitant]
     Indication: PRODUCT USED FOR UNKNOWN INDICATION
     Dosage: 2500ML/DAY
     Route: 042
     Dates: start: 20010910
  6. DIGITOXIN [Suspect]
     Active Substance: DIGITOXIN
     Indication: CARDIAC FAILURE
     Dosage: .07 MG, QD
     Route: 048
     Dates: start: 20010904
  7. ATROPINE. [Suspect]
     Active Substance: ATROPINE
     Indication: SURGERY
     Dosage: .25 MG, ONCE/SINGLE
     Route: 042
     Dates: start: 20010904, end: 20010904
  8. THIOPENTAL [Suspect]
     Active Substance: THIOPENTAL
     Indication: STUPOR
     Dosage: 250 ML, ONCE/SINGLE
     Route: 042
     Dates: start: 20010904, end: 20010904
  9. NAROPIN [Suspect]
     Active Substance: ROPIVACAINE HYDROCHLORIDE
     Indication: STUPOR
     Route: 042
     Dates: start: 20010910, end: 20010910
  10. DIGITOXIN [Suspect]
     Active Substance: DIGITOXIN
     Route: 048
     Dates: end: 20010903
  11. PIRACETAM [Suspect]
     Active Substance: PIRACETAM
     Indication: PRODUCT USED FOR UNKNOWN INDICATION
     Dosage: 1 DF, BID
     Route: 048
     Dates: start: 20010904, end: 20010909
  12. MULTIBIONTA [Suspect]
     Active Substance: MINERALS\PROBIOTICS NOS\VITAMINS
     Indication: PRODUCT USED FOR UNKNOWN INDICATION
     Dosage: 1DF/DAY
     Route: 042
     Dates: start: 20010911
  13. ATROPINE. [Suspect]
     Active Substance: ATROPINE
     Dosage: .25 MG, ONCE/SINGLE
     Route: 042
     Dates: start: 20010910, end: 20010910
  14. FENISTIL [Suspect]
     Active Substance: DIMETHINDENE
     Indication: PREMEDICATION
     Dosage: 8 ML, ONCE/SINGLE
     Route: 042
     Dates: start: 20010910, end: 20010910
  15. RANITIC [Suspect]
     Active Substance: RANITIDINE HYDROCHLORIDE
     Indication: PRODUCT USED FOR UNKNOWN INDICATION
     Dosage: 100 ML, ONCE/SINGLE
     Route: 042
     Dates: start: 20010910, end: 20010910
  16. GELAFUNDIN [Concomitant]
     Indication: PRODUCT USED FOR UNKNOWN INDICATION
     Route: 042
     Dates: start: 20010910, end: 20010910
  17. PROPAFENONE. [Suspect]
     Active Substance: PROPAFENONE
     Indication: ARRHYTHMIA
     Dosage: UNK, IRD
     Route: 048
     Dates: end: 20010903
  18. MIDAZOLAM [Suspect]
     Active Substance: MIDAZOLAM HYDROCHLORIDE
     Indication: STUPOR
     Route: 042
     Dates: start: 20010910, end: 20010910
  19. RYTMONORM [Suspect]
     Active Substance: PROPAFENONE
     Indication: ARRHYTHMIA
     Dosage: 150 MG, BID
     Route: 048
     Dates: start: 20010910
  20. FENTANYL. [Suspect]
     Active Substance: FENTANYL
     Indication: STUPOR
     Dosage: UNK ML
     Route: 042
     Dates: start: 20010910, end: 20010910
  21. PROPOFOL. [Suspect]
     Active Substance: PROPOFOL
     Indication: STUPOR
     Route: 042
     Dates: start: 20010910, end: 20010910
  22. PIRACETAM [Suspect]
     Active Substance: PIRACETAM
     Dosage: 12 DF, UNK IRD
     Route: 048
     Dates: end: 20010903
  23. REMIFENTANIL HYDROCHLORIDE. [Suspect]
     Active Substance: REMIFENTANIL HYDROCHLORIDE
     Indication: STUPOR
     Dosage: .45 G, ONCE/SINGLE
     Route: 042
     Dates: start: 20010904, end: 20010904
  24. BEPANTHEN (DEXPANTHENOL) [Suspect]
     Active Substance: DEXPANTHENOL
     Indication: PRODUCT USED FOR UNKNOWN INDICATION
     Dosage: 2DF/DAY
     Route: 042
     Dates: start: 20010911
  25. NACOM [Suspect]
     Active Substance: CARBIDOPA\LEVODOPA
     Indication: PARKINSON^S DISEASE
     Dosage: 50 MG, TID
     Route: 048
     Dates: start: 20010910
  26. NAVOBAN [Suspect]
     Active Substance: TROPISETRON HYDROCHLORIDE
     Indication: PROPHYLAXIS OF NAUSEA AND VOMITING
     Dosage: 2 MG, ONCE/SINGLE
     Route: 042
     Dates: start: 20010910, end: 20010910
  27. MONO-EMBOLEX [Suspect]
     Active Substance: CERTOPARIN SODIUM
     Indication: THROMBOSIS PROPHYLAXIS
     Dosage: .5 ML, ONCE/SINGLE
     Route: 058
     Dates: start: 20010910, end: 20010910
  28. PROPAFENONE. [Suspect]
     Active Substance: PROPAFENONE
     Dosage: 150 MG, BID
     Route: 048
     Dates: start: 20010904, end: 20010909
  29. SPIZEF (CEFOTIAM HYDROCHLORIDE) [Suspect]
     Active Substance: CEFOTIAM HYDROCHLORIDE
     Indication: PRODUCT USED FOR UNKNOWN INDICATION
     Dosage: 2 G, TID
     Route: 042
     Dates: start: 20010911
  30. NORMABRAIN [Suspect]
     Active Substance: PIRACETAM
     Indication: PRODUCT USED FOR UNKNOWN INDICATION
     Route: 048
     Dates: start: 20010910
  31. NOVALGIN (METAMIZOLE SODIUM) [Suspect]
     Active Substance: METAMIZOLE SODIUM
     Indication: PAIN
     Dosage: .25 G, ONCE/SINGLE
     Route: 042
     Dates: start: 20010904, end: 20010904
  32. RINGERS SOLUTION [Concomitant]
     Active Substance: CALCIUM CHLORIDE\POTASSIUM CHLORIDE\SODIUM CHLORIDE
     Route: 042
     Dates: start: 20010904, end: 20010904
  33. CALCIUM BETA [Concomitant]
     Indication: BLOOD CALCIUM DECREASED
     Dosage: UNK, IRD
     Route: 048
  34. KETAMINE [Suspect]
     Active Substance: KETAMINE
     Indication: STUPOR
     Route: 042
     Dates: start: 20010910, end: 20010910
  35. SUPRATONIN [Suspect]
     Active Substance: AMEZINIUM METILSULFATE
     Indication: PRODUCT USED FOR UNKNOWN INDICATION
     Dosage: 2.5 MG, ONCE/SINGLE
     Route: 042
     Dates: start: 20010910, end: 20010910
  36. SUFENTA [Suspect]
     Active Substance: SUFENTANIL CITRATE
     Indication: STUPOR
     Route: 042
     Dates: start: 20010910, end: 20010910
  37. RINGERS SOLUTION [Concomitant]
     Active Substance: CALCIUM CHLORIDE\POTASSIUM CHLORIDE\SODIUM CHLORIDE
     Indication: PRODUCT USED FOR UNKNOWN INDICATION
     Dosage: UNK
     Route: 042
     Dates: start: 20010910, end: 20010910
  38. ROPIVACAINE HYDROCHLORIDE. [Suspect]
     Active Substance: ROPIVACAINE HYDROCHLORIDE
     Route: 042
     Dates: start: 20010910, end: 20010910

REACTIONS (8)
  - Pyrexia [Recovered/Resolved]
  - Stevens-Johnson syndrome [Recovering/Resolving]
  - Toxic epidermal necrolysis [Recovering/Resolving]
  - Petechiae [Recovering/Resolving]
  - Hysterectomy [Unknown]
  - Blister [Recovering/Resolving]
  - Erythema [Recovering/Resolving]
  - Rash macular [Recovering/Resolving]

NARRATIVE: CASE EVENT DATE: 20010910
